FAERS Safety Report 8110802-6 (Version None)
Quarter: 2012Q1

REPORT INFORMATION
  Report Type: 
  Country: None (occurrence: None)
  Receive Date: 20120203
  Receipt Date: 20120123
  Transmission Date: 20120608
  Serious: Yes (Hospitalization, Other)
  Sender: FDA-Public Use
  Company Number: US-JNJFOC-20111204004

PATIENT
  Sex: Male

DRUGS (13)
  1. REMICADE [Suspect]
     Indication: COLITIS ULCERATIVE
     Route: 042
  2. MULTIPLE VITAMINS [Concomitant]
     Route: 065
  3. CALCIUM WITH VITAMIN D [Concomitant]
     Route: 065
  4. REMICADE [Suspect]
     Route: 042
     Dates: start: 20110308, end: 20110308
  5. PANTOPRAZOLE [Concomitant]
     Route: 065
  6. PAXIL [Concomitant]
     Route: 065
  7. ASPIRIN [Concomitant]
     Route: 065
  8. PREDNISONE TAB [Concomitant]
     Route: 065
  9. ZYRTEC [Concomitant]
     Route: 065
  10. FORTEO [Concomitant]
     Route: 065
  11. APRISO [Concomitant]
     Route: 065
  12. MERCAPTOPURINE [Concomitant]
     Route: 065
  13. REMICADE [Suspect]
     Route: 042
     Dates: start: 20110222

REACTIONS (8)
  - SYNCOPE [None]
  - DYSPNOEA [None]
  - INFUSION RELATED REACTION [None]
  - HYPERHIDROSIS [None]
  - MALAISE [None]
  - HYPOTENSION [None]
  - VOMITING [None]
  - FLUSHING [None]
